FAERS Safety Report 11300726 (Version 1)
Quarter: 2015Q3

REPORT INFORMATION
  Report Type: Spontaneous
  Country: US (occurrence: US)
  Receive Date: 20150722
  Receipt Date: 20150722
  Transmission Date: 20151125
  Serious: No
  Sender: FDA-Public Use
  Company Number: US-ELI_LILLY_AND_COMPANY-US201210008777

PATIENT
  Sex: Female

DRUGS (5)
  1. EVISTA [Suspect]
     Active Substance: RALOXIFENE HYDROCHLORIDE
     Dosage: 60 MG, 2/W
     Route: 065
     Dates: end: 20121003
  2. EVISTA [Suspect]
     Active Substance: RALOXIFENE HYDROCHLORIDE
     Dosage: 60 MG, QD
     Route: 065
  3. EVISTA [Suspect]
     Active Substance: RALOXIFENE HYDROCHLORIDE
     Dosage: 60 MG, QD
     Route: 065
  4. ASPIRIN. [Concomitant]
     Active Substance: ASPIRIN
     Indication: THROMBOSIS PROPHYLAXIS
     Dosage: 81 MG, UNK
  5. EVISTA [Suspect]
     Active Substance: RALOXIFENE HYDROCHLORIDE
     Dosage: 60 MG, WEEKLY (1/W)
     Route: 065

REACTIONS (13)
  - Malaise [Unknown]
  - Bone pain [Unknown]
  - Upper respiratory tract infection [Unknown]
  - Bronchitis [Unknown]
  - Fungal infection [Unknown]
  - Inappropriate schedule of drug administration [Unknown]
  - Blood follicle stimulating hormone increased [Unknown]
  - Thyroxine decreased [Unknown]
  - Asthenia [Recovered/Resolved]
  - Feeling abnormal [Unknown]
  - Cough [Unknown]
  - Upper respiratory tract congestion [Unknown]
  - Tri-iodothyronine decreased [Unknown]
